FAERS Safety Report 10039381 (Version 1)
Quarter: 2014Q1

REPORT INFORMATION
  Report Type: Report from Study
  Country: BR (occurrence: BR)
  Receive Date: 20140326
  Receipt Date: 20140326
  Transmission Date: 20141002
  Serious: Yes (Other)
  Sender: FDA-Public Use
  Company Number: PHHY2014BR034887

PATIENT
  Sex: Female
  Weight: 69 kg

DRUGS (1)
  1. RASILEZ [Suspect]
     Indication: ARRHYTHMIA
     Dosage: 1 DF (50MG) AT NIGHT
     Route: 048

REACTIONS (5)
  - Diabetes mellitus [Unknown]
  - Cardiac disorder [Unknown]
  - Malaise [Unknown]
  - Chest pain [Unknown]
  - Fatigue [Unknown]
